FAERS Safety Report 5494679-3 (Version None)
Quarter: 2007Q4

REPORT INFORMATION
  Report Type: 
  Country: None (occurrence: None)
  Receive Date: 20071023
  Receipt Date: 20071023
  Transmission Date: 20080405
  Serious: Yes (Life-Threatening, Hospitalization, Disabling)
  Sender: FDA-Public Use
  Company Number: None

PATIENT
  Age: 18 Year
  Sex: Female
  Weight: 56.6996 kg

DRUGS (2)
  1. MINOCYCLINE HCL [Suspect]
     Indication: ACNE
     Dosage: IBE CAPSULE TWICE DAILY PO
     Route: 048
  2. EFFEXOR [Concomitant]

REACTIONS (11)
  - BENIGN INTRACRANIAL HYPERTENSION [None]
  - BLINDNESS TRANSIENT [None]
  - BLINDNESS UNILATERAL [None]
  - DIZZINESS [None]
  - HEADACHE [None]
  - MASS [None]
  - NAUSEA [None]
  - OPTIC NERVE DISORDER [None]
  - OPTIC NERVE INJURY [None]
  - RETINAL DISORDER [None]
  - VISUAL DISTURBANCE [None]
